FAERS Safety Report 25807584 (Version 1)
Quarter: 2025Q3

REPORT INFORMATION
  Report Type: Spontaneous
  Country: US (occurrence: US)
  Receive Date: 20250916
  Receipt Date: 20250916
  Transmission Date: 20251020
  Serious: Yes (Hospitalization, Other)
  Sender: AMGEN
  Company Number: US-AMGEN-USASP2025179884

PATIENT
  Age: 57 Year
  Sex: Male

DRUGS (2)
  1. RITUXIMAB [Suspect]
     Active Substance: RITUXIMAB
     Indication: Tubulointerstitial nephritis
     Route: 065
  2. CORTICOSTEROID NOS [Concomitant]
     Active Substance: CORTICOSTEROID NOS

REACTIONS (7)
  - Pneumonia legionella [Unknown]
  - Pneumothorax [Unknown]
  - Renal impairment [Unknown]
  - Hyponatraemia [Unknown]
  - Pulmonary necrosis [Unknown]
  - Pulmonary cavitation [Unknown]
  - Off label use [Unknown]
